FAERS Safety Report 6310908-8 (Version None)
Quarter: 2009Q3

REPORT INFORMATION
  Report Type: 
  Country: None (occurrence: None)
  Receive Date: 20090812
  Receipt Date: 20090727
  Transmission Date: 20100115
  Serious: Yes (Other)
  Sender: FDA-Public Use
  Company Number: 2009SP017453

PATIENT
  Age: 25 Year
  Sex: Female
  Weight: 39 kg

DRUGS (2)
  1. MARVELON 28 (DESOGESTREL/ETHINYLESTRADIOL) [Suspect]
     Indication: CONTRACEPTION
     Dosage: 1 DF; QD; PO
     Route: 048
     Dates: start: 20070925
  2. CLARITH (CON.) [Concomitant]

REACTIONS (1)
  - APPENDICITIS [None]
